FAERS Safety Report 13990466 (Version 2)
Quarter: 2017Q3

REPORT INFORMATION
  Report Type: Spontaneous
  Country: US (occurrence: US)
  Receive Date: 20170920
  Receipt Date: 20170922
  Transmission Date: 20171128
  Serious: Yes (Other)
  Sender: FDA-Public Use
  Company Number: US-LUNDBECK-DKLU2032117

PATIENT
  Sex: Male

DRUGS (4)
  1. NORTHERA [Suspect]
     Active Substance: DROXIDOPA
     Route: 065
  2. DONEPEZIL. [Suspect]
     Active Substance: DONEPEZIL
     Indication: PRODUCT USED FOR UNKNOWN INDICATION
     Route: 065
  3. DONEPEZIL. [Suspect]
     Active Substance: DONEPEZIL
     Route: 065
  4. NORTHERA [Suspect]
     Active Substance: DROXIDOPA
     Indication: PRODUCT USED FOR UNKNOWN INDICATION
     Dosage: SCHEDULE C AND TITRATING
     Route: 065
     Dates: start: 20170501

REACTIONS (13)
  - Syncope [Unknown]
  - Anger [Unknown]
  - Visual impairment [Unknown]
  - Loss of consciousness [Unknown]
  - Cognitive disorder [Unknown]
  - Dizziness [Unknown]
  - Condition aggravated [Unknown]
  - Orthostatic hypotension [Unknown]
  - Thinking abnormal [Unknown]
  - Freezing phenomenon [Unknown]
  - Vision blurred [Unknown]
  - Anxiety [Unknown]
  - Mood altered [Unknown]
